FAERS Safety Report 17493088 (Version 1)
Quarter: 2020Q1

REPORT INFORMATION
  Report Type: Spontaneous
  Country: US (occurrence: US)
  Receive Date: 20190928
  Receipt Date: 20190928
  Transmission Date: 20200409
  Serious: Yes (Hospitalization)
  Sender: FDA-Public Use
  Company Number: None

PATIENT
  Age: 16 Year
  Sex: Male

DRUGS (3)
  1. THC VAPE [Suspect]
     Active Substance: .DELTA.8-TETRAHYDROCANNABINOL\DEVICE\HERBALS
  2. JUUL [DEVICE\NICOTINE] [Suspect]
     Active Substance: DEVICE\NICOTINE
  3. BRASS KNUCKLE [THC VAPE] [Suspect]
     Active Substance: .DELTA.8-TETRAHYDROCANNABINOL\DEVICE\HERBALS

REACTIONS (2)
  - Depression [None]
  - Seizure [None]
